FAERS Safety Report 7651139-9 (Version None)
Quarter: 2011Q3

REPORT INFORMATION
  Report Type: 
  Country: None (occurrence: None)
  Receive Date: 20110802
  Receipt Date: 20110722
  Transmission Date: 20111222
  Serious: Yes (Hospitalization)
  Sender: FDA-Public Use
  Company Number: US-ACTELION-A-NJ2011-51947

PATIENT

DRUGS (3)
  1. EXJADE [Concomitant]
  2. TRACLEER [Suspect]
     Indication: PULMONARY ARTERIAL HYPERTENSION
     Dosage: UNK
     Route: 048
     Dates: start: 20100420
  3. COUMADIN [Concomitant]

REACTIONS (2)
  - SICKLE CELL ANAEMIA [None]
  - DISEASE COMPLICATION [None]
